FAERS Safety Report 7035945-X (Version None)
Quarter: 2010Q4

REPORT INFORMATION
  Report Type: 
  Country: None (occurrence: None)
  Receive Date: 20101008
  Receipt Date: 20100929
  Transmission Date: 20110411
  Serious: Yes (Hospitalization, Other)
  Sender: FDA-Public Use
  Company Number: US-SANOFI-AVENTIS-2010SA059639

PATIENT
  Age: 82 Year
  Sex: Female

DRUGS (10)
  1. PLAVIX [Suspect]
     Route: 048
     Dates: start: 20061101
  2. PLAVIX [Suspect]
     Indication: VASCULAR OCCLUSION
     Route: 048
     Dates: start: 20061101
  3. ASPIRIN [Concomitant]
  4. ZYRTEC [Concomitant]
  5. LOSARTAN [Concomitant]
  6. CRESTOR [Concomitant]
  7. AMITRIPTYLINE [Concomitant]
  8. ACTONEL [Concomitant]
     Route: 065
  9. NEXIUM [Concomitant]
  10. PROTONIX [Concomitant]

REACTIONS (6)
  - BLOOD PRESSURE INCREASED [None]
  - DRUG HYPERSENSITIVITY [None]
  - DYSPEPSIA [None]
  - INTESTINAL OBSTRUCTION [None]
  - PYREXIA [None]
  - URINARY TRACT INFECTION [None]
